FAERS Safety Report 11359243 (Version 1)
Quarter: 2015Q3

REPORT INFORMATION
  Report Type: Report from Study
  Country: ES (occurrence: ES)
  Receive Date: 20150807
  Receipt Date: 20150807
  Transmission Date: 20151125
  Serious: Yes (Other)
  Sender: FDA-Public Use
  Company Number: ES-ABBVIE-15P-144-1439284-00

PATIENT
  Sex: Female

DRUGS (1)
  1. DUODOPA [Suspect]
     Active Substance: CARBIDOPA\LEVODOPA
     Indication: PARKINSON^S DISEASE
     Route: 050
     Dates: start: 20131010

REACTIONS (6)
  - Asthenia [Unknown]
  - Physical disability [Unknown]
  - Mobility decreased [Unknown]
  - Drug ineffective [Unknown]
  - Aphonia [Unknown]
  - Depression [Unknown]

NARRATIVE: CASE EVENT DATE: 2015
